FAERS Safety Report 6909228-X (Version None)
Quarter: 2010Q3

REPORT INFORMATION
  Report Type: 
  Country: None (occurrence: None)
  Receive Date: 20100805
  Receipt Date: 20100630
  Transmission Date: 20110219
  Serious: No
  Sender: FDA-Public Use
  Company Number: US-BAYER-201027157NA

PATIENT
  Age: 74 Year
  Sex: Female

DRUGS (4)
  1. ULTRAVIST 300 [Suspect]
     Indication: ANGIOGRAM
     Dosage: AS USED: 94 ML  UNIT DOSE: 300 ML
     Route: 042
     Dates: start: 20100630, end: 20100630
  2. METOPROLOL [Concomitant]
  3. SIMVASTATIN [Concomitant]
  4. LOSARTAN [Concomitant]

REACTIONS (1)
  - ERYTHEMA [None]
